FAERS Safety Report 7658018 (Version 3)
Quarter: 2012Q4

REPORT INFORMATION
  Report Type: 
  Country: JP (occurrence: JP)
  Receive Date: 20101105
  Receipt Date: 20120904
  Transmission Date: 20130627
  Serious: Yes (Death, Hospitalization)
  Sender: FDA-Public Use
  Company Number: JP-ROCHE-641812

PATIENT
  Age: 78 None
  Sex: Male
  Weight: 51 kg

DRUGS (11)
  1. ROACTEMRA [Suspect]
     Indication: RHEUMATOID ARTHRITIS
     Route: 041
     Dates: start: 20080828, end: 20080828
  2. ROACTEMRA [Suspect]
  3. ISONIAZID [Concomitant]
     Dosage: FORM: TABLET
     Route: 048
  4. PREDNISOLONE [Concomitant]
     Route: 048
  5. PREDNISOLONE [Concomitant]
     Dosage: DOSEFORM: PERORAL AGENT.
     Route: 048
     Dates: start: 20080925, end: 20081001
  6. PREDNISOLONE [Concomitant]
     Route: 048
     Dates: start: 20081002, end: 20081015
  7. PREDNISOLONE [Concomitant]
     Route: 048
  8. MOBIC [Concomitant]
     Route: 048
  9. TAKEPRON [Concomitant]
     Route: 048
  10. PYDOXAL [Concomitant]
     Route: 048
  11. CLARITHROMYCIN [Concomitant]
     Dosage: FORM: PERORAL AGENT
     Route: 048

REACTIONS (6)
  - Sporotrichosis [Fatal]
  - Skin ulcer [Unknown]
  - Septic shock [Fatal]
  - Leukocytoclastic vasculitis [Unknown]
  - Oedema peripheral [Recovered/Resolved]
  - Cellulitis [Unknown]
